FAERS Safety Report 8213697-5 (Version None)
Quarter: 2012Q1

REPORT INFORMATION
  Report Type: 
  Country: None (occurrence: None)
  Receive Date: 20120315
  Receipt Date: 20120306
  Transmission Date: 20120608
  Serious: Yes (Other)
  Sender: FDA-Public Use
  Company Number: US-BAXTER-2012BH006397

PATIENT
  Sex: Male
  Weight: 86 kg

DRUGS (31)
  1. AMOXICILLIN AND CLAVULANATE POTASSIUM [Concomitant]
     Indication: CHRONIC SINUSITIS
     Route: 065
  2. MELOXICAM [Concomitant]
     Indication: PAIN
     Route: 065
  3. NYSTATIN [Concomitant]
     Indication: CHRONIC SINUSITIS
     Route: 065
  4. ALLOPURINOL [Concomitant]
     Indication: GOUT
     Route: 065
  5. METOCLOPRAMIDE [Concomitant]
     Indication: GASTROOESOPHAGEAL REFLUX DISEASE
     Route: 065
  6. GAMMAGARD LIQUID [Suspect]
     Indication: IMMUNODEFICIENCY COMMON VARIABLE
     Route: 042
     Dates: start: 20080101
  7. AUGMENTIN '125' [Concomitant]
     Indication: ANTIBIOTIC PROPHYLAXIS
     Route: 048
     Dates: start: 19880101
  8. VICODIN [Concomitant]
     Indication: PAIN
     Route: 065
  9. ACYCLOVIR [Concomitant]
     Indication: VIRAL INFECTION
     Route: 065
  10. ZITHROMAX [Concomitant]
     Indication: PRODUCT USED FOR UNKNOWN INDICATION
     Route: 048
  11. NIFEDIPINE [Concomitant]
     Indication: HYPERTENSION
     Route: 065
  12. CETIRIZINE [Concomitant]
     Indication: PREMEDICATION
     Route: 048
  13. PREDNISONE TAB [Concomitant]
     Indication: BACTERIAL INFECTION
     Route: 065
  14. SULFAMETHOXAZOLE AND TRIMETHOPRIM [Concomitant]
     Indication: PRODUCT USED FOR UNKNOWN INDICATION
     Route: 048
     Dates: start: 20090324
  15. LEVAQUIN [Concomitant]
     Indication: PRODUCT USED FOR UNKNOWN INDICATION
     Route: 048
     Dates: start: 20101008
  16. OMEPRAZOLE [Concomitant]
     Indication: GASTROOESOPHAGEAL REFLUX DISEASE
     Route: 065
  17. TRIAMTERENE AND HYDROCHLOROTHIAZIDE [Concomitant]
     Indication: HYPERTENSION
     Route: 065
  18. ANDROGEL [Concomitant]
     Indication: HYPOPITUITARISM
     Route: 065
  19. TYLENOL [Concomitant]
     Indication: PREMEDICATION
     Route: 048
  20. GUAIFENESIN [Concomitant]
     Indication: CHRONIC SINUSITIS
     Route: 065
  21. SINGULAIR [Concomitant]
     Indication: ASTHMA
     Route: 065
  22. ASTELIN [Concomitant]
     Indication: CHRONIC SINUSITIS
     Route: 045
  23. NASAL SALINE [Concomitant]
     Indication: NASAL IRRIGATION
     Route: 045
  24. ACETAMINOPHEN [Concomitant]
     Indication: PAIN
     Route: 065
  25. LISINOPRIL [Concomitant]
     Indication: HYPERTENSION
     Route: 065
  26. SYNTHROID [Concomitant]
     Indication: HYPOPITUITARISM
     Route: 065
  27. LIOTHYRONINE SODIUM [Concomitant]
     Indication: HYPOPITUITARISM
     Route: 065
  28. ALPRAZOLAM [Concomitant]
     Indication: CEREBROVASCULAR ACCIDENT
     Route: 065
  29. CLINDAMYCIN [Concomitant]
     Indication: LOCALISED INFECTION
     Route: 048
  30. MAXAIR [Concomitant]
     Indication: ASTHMA
     Route: 055
  31. ALISKIREN [Concomitant]
     Indication: HYPERTENSION
     Route: 065

REACTIONS (2)
  - DRUG HYPERSENSITIVITY [None]
  - FUNGAL TEST POSITIVE [None]
